FAERS Safety Report 7950170-3 (Version None)
Quarter: 2011Q4

REPORT INFORMATION
  Report Type: 
  Country: None (occurrence: None)
  Receive Date: 20111130
  Receipt Date: 20071121
  Transmission Date: 20120403
  Serious: Yes (Other)
  Sender: FDA-Public Use
  Company Number: PHHY2007BR011306

PATIENT
  Age: 6 Year
  Sex: Female
  Weight: 29 kg

DRUGS (2)
  1. SINGULAIR [Concomitant]
     Dosage: 5 MG, QHS
     Route: 048
  2. TRILEPTAL [Suspect]
     Indication: CONVULSION
     Dosage: 1 DF, BID
     Route: 048
     Dates: start: 20070101

REACTIONS (3)
  - ANGINA PECTORIS [None]
  - CHEST PAIN [None]
  - HEART RATE IRREGULAR [None]
